FAERS Safety Report 4938283-1 (Version None)
Quarter: 2006Q1

REPORT INFORMATION
  Report Type: 
  Country: None (occurrence: None)
  Receive Date: 20060309
  Receipt Date: 20050414
  Transmission Date: 20060701
  Serious: Yes (Other)
  Sender: FDA-Public Use
  Company Number: US-MERCK-0504USA02908

PATIENT
  Age: 47 Year
  Sex: Male
  Weight: 136 kg

DRUGS (7)
  1. VIOXX [Suspect]
     Indication: MONARTHRITIS
     Route: 048
     Dates: start: 19980101, end: 20030101
  2. VIOXX [Suspect]
     Indication: ARTHRITIS
     Route: 048
     Dates: start: 19980101, end: 20030101
  3. VIOXX [Suspect]
     Route: 048
     Dates: start: 19980101, end: 20030101
  4. VIOXX [Suspect]
     Route: 048
     Dates: start: 19980101, end: 20030101
  5. GLUCOPHAGE [Concomitant]
     Route: 065
  6. VIOXX [Suspect]
     Route: 048
     Dates: start: 19980101, end: 20030101
  7. VIOXX [Suspect]
     Route: 048
     Dates: start: 19980101, end: 20030101

REACTIONS (8)
  - CARDIAC FAILURE [None]
  - CEREBROVASCULAR ACCIDENT [None]
  - CHEST PAIN [None]
  - HEPATOCELLULAR DAMAGE [None]
  - INJURY [None]
  - MYOCARDIAL INFARCTION [None]
  - RENAL DISORDER [None]
  - THROMBOSIS [None]
